FAERS Safety Report 9774771 (Version 1)
Quarter: 2013Q4

REPORT INFORMATION
  Report Type: Spontaneous
  Country: US (occurrence: US)
  Receive Date: 20131220
  Receipt Date: 20131220
  Transmission Date: 20140711
  Serious: Yes (Other)
  Sender: FDA-Public Use
  Company Number: US-TEVA-451842USA

PATIENT
  Age: 46 Year
  Sex: Female

DRUGS (5)
  1. RIBAVIRIN [Suspect]
     Indication: HEPATITIS C
     Dosage: WEIGHT-BASED OR FIXED 800MG DOSE
     Route: 065
  2. TELAPREVIR [Suspect]
     Indication: HEPATITIS C
     Dosage: 2250 MG/DAY (2 TABLETS Q8H)
     Route: 048
  3. PEGINTERFERON [Suspect]
     Indication: HEPATITIS C
     Route: 058
  4. RALTEGRAVIR [Concomitant]
     Indication: HIV INFECTION
     Route: 065
  5. LAMIVUDINE, ABACAVIR [Concomitant]
     Indication: HIV INFECTION
     Route: 065

REACTIONS (2)
  - Septic shock [Unknown]
  - Anaemia [Unknown]
